FAERS Safety Report 11455162 (Version 1)
Quarter: 2015Q3

REPORT INFORMATION
  Report Type: Spontaneous
  Country: US (occurrence: US)
  Receive Date: 20150903
  Receipt Date: 20150903
  Transmission Date: 20151125
  Serious: No
  Sender: FDA-Public Use
  Company Number: US-PFIZER INC-2015286132

PATIENT
  Age: 72 Year
  Sex: Female
  Weight: 69 kg

DRUGS (1)
  1. LYRICA [Suspect]
     Active Substance: PREGABALIN
     Indication: NEUROPATHY PERIPHERAL
     Dosage: 150 MG CAPSULE IN MORNING AND 300 MG CAPSULE AT NIGHT
     Route: 048
     Dates: start: 2011, end: 2015

REACTIONS (4)
  - Feeling abnormal [Recovered/Resolved]
  - Disturbance in attention [Recovered/Resolved]
  - Feeling jittery [Recovered/Resolved]
  - Insomnia [Recovered/Resolved]
